FAERS Safety Report 6347756-9 (Version None)
Quarter: 2009Q3

REPORT INFORMATION
  Report Type: 
  Country: None (occurrence: None)
  Receive Date: 20090910
  Receipt Date: 20090901
  Transmission Date: 20100115
  Serious: Yes (Death, Hospitalization)
  Sender: FDA-Public Use
  Company Number: A0805475A

PATIENT
  Age: 62 Year
  Sex: Male

DRUGS (1)
  1. AVANDIA [Suspect]
     Indication: DIABETES MELLITUS
     Dosage: 8MG PER DAY
     Route: 048
     Dates: start: 20040220, end: 20060825

REACTIONS (5)
  - CARDIAC FAILURE CONGESTIVE [None]
  - CHRONIC OBSTRUCTIVE PULMONARY DISEASE [None]
  - COMA [None]
  - DEATH [None]
  - MYOCARDIAL INFARCTION [None]
